FAERS Safety Report 21578228 (Version 4)
Quarter: 2024Q3

REPORT INFORMATION
  Report Type: Spontaneous
  Country: RU (occurrence: RU)
  Receive Date: 20221110
  Receipt Date: 20240823
  Transmission Date: 20241016
  Serious: Yes (Hospitalization, Other)
  Sender: VERTEX
  Company Number: RU-VERTEX PHARMACEUTICALS-2022-015230

PATIENT
  Sex: Male
  Weight: 18 kg

DRUGS (9)
  1. ORKAMBI [Suspect]
     Active Substance: IVACAFTOR\LUMACAFTOR
     Indication: Cystic fibrosis
     Dosage: 1 PACKET GRANULES (150MG/ 188MG) BID
     Route: 048
     Dates: start: 20220612, end: 20220625
  2. ORKAMBI [Suspect]
     Active Substance: IVACAFTOR\LUMACAFTOR
     Dosage: 1 PACKET GRANULES (150MG /188MG), QD (MORNING)
     Route: 048
     Dates: start: 20220626, end: 202207
  3. ORKAMBI [Suspect]
     Active Substance: IVACAFTOR\LUMACAFTOR
     Dosage: 1 PACKET GRANULES (150MG /188MG), BID
     Route: 048
     Dates: start: 202207, end: 20221010
  4. TIGERASE [Concomitant]
     Indication: Cystic fibrosis
     Dosage: UNK
     Dates: start: 20190101
  5. CREON [Concomitant]
     Active Substance: PANCRELIPASE AMYLASE\PANCRELIPASE LIPASE\PANCRELIPASE PROTEASE
     Indication: Cystic fibrosis
     Dosage: UNK
     Route: 048
     Dates: start: 20190101
  6. URSODIOL [Concomitant]
     Active Substance: URSODIOL
     Indication: Hepatic fibrosis
     Dosage: UNK
     Route: 048
     Dates: start: 20190101
  7. URSODIOL [Concomitant]
     Active Substance: URSODIOL
     Indication: Alanine aminotransferase increased
     Dosage: INCREASE DOSE TO 30MG/KG, 10 ML A DAY
     Dates: start: 2022
  8. URSODIOL [Concomitant]
     Active Substance: URSODIOL
     Indication: Aspartate aminotransferase increased
  9. URSODIOL [Concomitant]
     Active Substance: URSODIOL
     Indication: Cystic fibrosis

REACTIONS (15)
  - Hospitalisation [Unknown]
  - Alanine aminotransferase increased [Recovering/Resolving]
  - Aspartate aminotransferase increased [Recovering/Resolving]
  - Vomiting [Recovering/Resolving]
  - Hepatic fibrosis [Not Recovered/Not Resolved]
  - Epistaxis [Recovered/Resolved]
  - Skin hyperpigmentation [Unknown]
  - Sweat test abnormal [Unknown]
  - Cholestasis [Unknown]
  - Hypertension [Unknown]
  - Viral upper respiratory tract infection [Unknown]
  - Affect lability [Recovered/Resolved]
  - Cough [Recovered/Resolved]
  - Sputum increased [Recovered/Resolved]
  - Abdominal pain upper [Recovered/Resolved]

NARRATIVE: CASE EVENT DATE: 20220101
